FAERS Safety Report 15853573 (Version 1)
Quarter: 2019Q1

REPORT INFORMATION
  Report Type: Spontaneous
  Country: FR (occurrence: FR)
  Receive Date: 20190122
  Receipt Date: 20190122
  Transmission Date: 20190417
  Serious: Yes (Death)
  Sender: FDA-Public Use
  Company Number: FR-BAUSCH-BL-2019-001952

PATIENT
  Sex: Female

DRUGS (2)
  1. XENAZINE [Suspect]
     Active Substance: TETRABENAZINE
     Indication: DYSKINESIA
     Route: 048
  2. BOTULINUM TOXIN TYPE A [Suspect]
     Active Substance: BOTULINUM TOXIN TYPE A
     Indication: SALIVARY HYPERSECRETION
     Route: 050
     Dates: start: 20181004, end: 20181004

REACTIONS (4)
  - Acute respiratory distress syndrome [Fatal]
  - Dysphagia [Fatal]
  - Dyspnoea [Fatal]
  - Choking [Fatal]

NARRATIVE: CASE EVENT DATE: 20181005
